FAERS Safety Report 4406216-2 (Version None)
Quarter: 2004Q3

REPORT INFORMATION
  Report Type: 
  Country: None (occurrence: None)
  Receive Date: 20040716
  Receipt Date: 20040705
  Transmission Date: 20050211
  Serious: Yes (Other)
  Sender: FDA-Public Use
  Company Number: JP-JNJFOC-20040700482

PATIENT
  Age: 60 Year
  Sex: Male

DRUGS (2)
  1. ITRACONAZOLE [Suspect]
     Indication: ONYCHOMYCOSIS
     Dosage: 200 MG, 2 IN 1 DAY, ORAL
     Route: 048
     Dates: start: 20040610, end: 20040615
  2. DOXAZOSIN MESILATE              (DOXAZOSIN MEISLATE) [Concomitant]

REACTIONS (5)
  - FACE OEDEMA [None]
  - FEELING ABNORMAL [None]
  - NEPHROPATHY [None]
  - OEDEMA PERIPHERAL [None]
  - RENAL IMPAIRMENT [None]
